FAERS Safety Report 7671981-8 (Version None)
Quarter: 2011Q3

REPORT INFORMATION
  Report Type: 
  Country: None (occurrence: None)
  Receive Date: 20110809
  Receipt Date: 20110803
  Transmission Date: 20111222
  Serious: Yes (Other)
  Sender: FDA-Public Use
  Company Number: GB-BAYER-2011-051429

PATIENT
  Age: 55 Year
  Sex: Female

DRUGS (6)
  1. NITROFURANTOIN [Suspect]
  2. GABAPENTIN [Concomitant]
  3. BACLOFEN [Concomitant]
  4. BETASERON [Suspect]
     Indication: MULTIPLE SCLEROSIS
     Dosage: 250 ?G, QOD
     Route: 058
     Dates: start: 20090401
  5. BOTOX [Concomitant]
  6. AMITRIPTYLINE HCL [Concomitant]

REACTIONS (5)
  - INJECTION SITE WARMTH [None]
  - INJECTION SITE HAEMATOMA [None]
  - INJECTION SITE ERYTHEMA [None]
  - BLADDER DISORDER [None]
  - INJECTION SITE PAIN [None]
